FAERS Safety Report 24559081 (Version 1)
Quarter: 2024Q4

REPORT INFORMATION
  Report Type: Spontaneous
  Country: JP (occurrence: JP)
  Receive Date: 20241029
  Receipt Date: 20241029
  Transmission Date: 20250115
  Serious: Yes (Hospitalization, Other)
  Sender: ASTELLAS
  Company Number: JP-ASTELLAS-2024-AER-014364

PATIENT
  Age: 79 Year
  Sex: Female

DRUGS (2)
  1. VESICARE [Suspect]
     Active Substance: SOLIFENACIN SUCCINATE
     Indication: Pollakiuria
     Route: 048
  2. REMINYL [Concomitant]
     Active Substance: GALANTAMINE
     Indication: Memory impairment
     Route: 065
     Dates: start: 2017

REACTIONS (3)
  - Dementia [Unknown]
  - Urinary tract infection [Unknown]
  - Urine output decreased [Unknown]
